FAERS Safety Report 7203009-8 (Version None)
Quarter: 2010Q4

REPORT INFORMATION
  Report Type: 
  Country: None (occurrence: None)
  Receive Date: 20101229
  Receipt Date: 20101221
  Transmission Date: 20110411
  Serious: No
  Sender: FDA-Public Use
  Company Number: NL-ABBOTT-10P-114-0674746-00

PATIENT
  Sex: Female
  Weight: 75 kg

DRUGS (2)
  1. LUPRON DEPOT [Suspect]
     Indication: BREAST CANCER
     Route: 058
     Dates: start: 20100414
  2. ANASTROZOLE [Concomitant]
     Indication: BREAST CANCER
     Dosage: 1MG DAILY

REACTIONS (5)
  - DRY MOUTH [None]
  - HEADACHE [None]
  - HOT FLUSH [None]
  - METRORRHAGIA [None]
  - NAUSEA [None]
